FAERS Safety Report 16672449 (Version 1)
Quarter: 2019Q3

REPORT INFORMATION
  Report Type: Report from Study
  Country: CA (occurrence: CA)
  Receive Date: 20190806
  Receipt Date: 20190806
  Transmission Date: 20191004
  Serious: Yes (Other)
  Sender: FDA-Public Use
  Company Number: CA-BEH-2019104990

PATIENT
  Age: 27 Year
  Sex: Female

DRUGS (4)
  1. HAEMATE P [Suspect]
     Active Substance: ANTIHEMOPHILIC FACTOR HUMAN
     Indication: VON WILLEBRAND^S DISEASE
     Dosage: 2000 RISTOCETIN COFACTOR (REPORTED AS RCOF) DAILY UNTIL PARTUM DAY 14
     Route: 042
  2. HAEMATE P [Suspect]
     Active Substance: ANTIHEMOPHILIC FACTOR HUMAN
     Indication: PROPHYLAXIS
     Dosage: 3686 RISTOCETIN COFACTOR (REPORTED AS RCOF) TOTAL
     Route: 065
     Dates: start: 20190724, end: 20190724
  3. HAEMATE P [Suspect]
     Active Substance: ANTIHEMOPHILIC FACTOR HUMAN
     Indication: VON WILLEBRAND^S DISEASE
     Dosage: 2000 RISTOCETIN COFACTOR (REPORTED AS RCOF) DAILY UNTIL PARTUM DAY 14
     Route: 042
  4. HAEMATE P [Suspect]
     Active Substance: ANTIHEMOPHILIC FACTOR HUMAN
     Indication: PROPHYLAXIS
     Dosage: 3686 RISTOCETIN COFACTOR (REPORTED AS RCOF) TOTAL
     Route: 065
     Dates: start: 20190724, end: 20190724

REACTIONS (23)
  - Diabetic vascular disorder [Recovered/Resolved]
  - Pallor [Unknown]
  - Gastrointestinal examination abnormal [Unknown]
  - Visual impairment [Recovered/Resolved]
  - Haemoglobin decreased [Recovered/Resolved]
  - Blood pressure decreased [Recovered/Resolved]
  - Vaginal haemorrhage [Unknown]
  - Skin warm [Unknown]
  - Infusion site bruising [Not Recovered/Not Resolved]
  - Hypotension [Recovered/Resolved]
  - Malaise [Unknown]
  - Presyncope [Recovered/Resolved]
  - Depressed mood [Unknown]
  - Central venous catheterisation [Unknown]
  - Peripheral swelling [Unknown]
  - Stress [Unknown]
  - Dizziness [Recovered/Resolved]
  - Accidental overdose [Unknown]
  - Pupil fixed [Recovered/Resolved]
  - Unevaluable event [Recovering/Resolving]
  - Fatigue [Unknown]
  - No adverse event [Unknown]
  - Gestational diabetes [Unknown]

NARRATIVE: CASE EVENT DATE: 2019
